FAERS Safety Report 25682549 (Version 2)
Quarter: 2025Q3

REPORT INFORMATION
  Report Type: Spontaneous
  Country: GB (occurrence: GB)
  Receive Date: 20250814
  Receipt Date: 20250901
  Transmission Date: 20251020
  Serious: Yes (Other)
  Sender: TEVA
  Company Number: GB-GSK-GB2025GSK090932

PATIENT
  Sex: Male
  Weight: 3 kg

DRUGS (17)
  1. FENTANYL [Suspect]
     Active Substance: FENTANYL
     Indication: Analgesic therapy
     Route: 064
  2. VITAMIN D NOS [Suspect]
     Active Substance: CHOLECALCIFEROL\ERGOCALCIFEROL
     Indication: Product used for unknown indication
     Route: 064
  3. VITAMIN D NOS [Suspect]
     Active Substance: CHOLECALCIFEROL\ERGOCALCIFEROL
     Indication: Product used for unknown indication
     Route: 064
  4. CYCLIZINE [Suspect]
     Active Substance: CYCLIZINE
     Indication: Analgesic therapy
     Route: 064
  5. ACETAMINOPHEN [Suspect]
     Active Substance: ACETAMINOPHEN
     Indication: Pyrexia
     Route: 064
  6. MEPERIDINE [Suspect]
     Active Substance: MEPERIDINE
     Indication: Analgesic therapy
     Route: 064
  7. METRONIDAZOLE [Suspect]
     Active Substance: METRONIDAZOLE
     Indication: Antibiotic therapy
     Route: 064
  8. DEXTROSE [Suspect]
     Active Substance: DEXTROSE MONOHYDRATE
     Indication: Product used for unknown indication
     Route: 064
  9. DIAMORPHINE [Suspect]
     Active Substance: DIAMORPHINE
     Indication: Analgesic therapy
     Route: 064
  10. ASPIRIN [Suspect]
     Active Substance: ASPIRIN
     Indication: Left ventricular hypertrophy
     Dosage: 150 MG, 1D
     Route: 064
  11. HEPARIN [Suspect]
     Active Substance: HEPARIN SODIUM
     Indication: Thrombosis prophylaxis
     Route: 064
  12. FOLIC ACID [Suspect]
     Active Substance: FOLIC ACID
     Indication: Product used for unknown indication
     Dosage: 5 MG, 1D
     Route: 064
  13. CEFUROXIME [Suspect]
     Active Substance: CEFUROXIME
     Indication: Antibiotic therapy
     Route: 064
  14. OXYTOCIN [Suspect]
     Active Substance: OXYTOCIN
     Indication: Product used for unknown indication
     Route: 064
  15. SODIUM CHLORIDE [Suspect]
     Active Substance: SODIUM CHLORIDE
     Indication: Product used for unknown indication
     Route: 064
  16. BUPIVACAINE HYDROCHLORIDE [Suspect]
     Active Substance: BUPIVACAINE HYDROCHLORIDE
     Indication: Analgesic therapy
     Route: 064
  17. BUPIVACAINE HYDROCHLORIDE [Suspect]
     Active Substance: BUPIVACAINE HYDROCHLORIDE
     Indication: Analgesic therapy
     Route: 064

REACTIONS (2)
  - Jaundice neonatal [Unknown]
  - Foetal exposure during pregnancy [Unknown]
